FAERS Safety Report 6633170-5 (Version None)
Quarter: 2010Q1

REPORT INFORMATION
  Report Type: 
  Country: None (occurrence: None)
  Receive Date: 20100312
  Receipt Date: 20100302
  Transmission Date: 20100710
  Serious: Yes (Other)
  Sender: FDA-Public Use
  Company Number: US-PFIZER INC-2008032668

PATIENT
  Sex: Female

DRUGS (5)
  1. CHANTIX [Suspect]
  2. INTERFERON [Concomitant]
  3. RIBAVIRIN [Concomitant]
  4. WELLBUTRIN [Concomitant]
  5. AMBIEN [Concomitant]

REACTIONS (9)
  - CHEST PAIN [None]
  - CHOLELITHIASIS [None]
  - CONFUSIONAL STATE [None]
  - FALL [None]
  - FIBROMYALGIA [None]
  - FRACTURE [None]
  - HEPATITIS [None]
  - NEOPLASM [None]
  - WEIGHT INCREASED [None]
